FAERS Safety Report 8429527-2 (Version None)
Quarter: 2012Q2

REPORT INFORMATION
  Report Type: 
  Country: None (occurrence: None)
  Receive Date: 20120612
  Receipt Date: 20120606
  Transmission Date: 20120825
  Serious: Yes (Death)
  Sender: FDA-Public Use
  Company Number: FR-PFIZER INC-2012135507

PATIENT
  Age: 51 Year
  Sex: Female

DRUGS (5)
  1. ELOXATIN [Suspect]
     Indication: LYMPHOMA
     Dosage: 160 MG, UNK
     Dates: start: 20120214
  2. CEFOTAXIME [Suspect]
     Indication: URINARY TRACT INFECTION
     Dosage: UNK
     Dates: start: 20120201, end: 20120214
  3. DEXAMETHASONE [Suspect]
     Indication: LYMPHOMA
     Dosage: UNK
     Dates: start: 20120201
  4. CYTARABINE [Suspect]
     Indication: LYMPHOMA
     Dosage: 3200 MG, UNK
     Dates: start: 20120214
  5. MABTHERA [Suspect]
     Indication: LYMPHOMA
     Dosage: 600 MG, UNK
     Dates: start: 20120213

REACTIONS (4)
  - DYSPNOEA [None]
  - ABDOMINAL PAIN [None]
  - DIARRHOEA [None]
  - SHOCK [None]
